FAERS Safety Report 8729659 (Version 2)
Quarter: 2015Q3

REPORT INFORMATION
  Report Type: Report from Study
  Country: US (occurrence: US)
  Receive Date: 20120817
  Receipt Date: 20150821
  Transmission Date: 20151125
  Serious: Yes (Hospitalization, Other)
  Sender: FDA-Public Use
  Company Number: US-ROCHE-1101335

PATIENT
  Age: 56 Year
  Sex: Female

DRUGS (5)
  1. ACTIVASE [Suspect]
     Active Substance: ALTEPLASE
     Dosage: 50 MG + 20 MG + 20 MG
     Route: 042
  2. PROMETHAZINE [Concomitant]
     Active Substance: PROMETHAZINE\PROMETHAZINE HYDROCHLORIDE
     Route: 040
  3. ACTIVASE [Suspect]
     Active Substance: ALTEPLASE
     Route: 040
  4. MAALOX ANTACID [Concomitant]
     Active Substance: ALUMINUM HYDROXIDE\DIMETHICONE\MAGNESIUM HYDROXIDE
     Route: 048
  5. ACTIVASE [Suspect]
     Active Substance: ALTEPLASE
     Indication: ACUTE MYOCARDIAL INFARCTION
     Route: 040
     Dates: start: 19911104

REACTIONS (4)
  - Hyperhidrosis [Unknown]
  - Reperfusion arrhythmia [Unknown]
  - Chest pain [Recovered/Resolved]
  - Dyspnoea [Unknown]
